FAERS Safety Report 20379884 (Version 1)
Quarter: 2022Q1

REPORT INFORMATION
  Report Type: Spontaneous
  Country: US (occurrence: US)
  Receive Date: 20220126
  Receipt Date: 20220126
  Transmission Date: 20220423
  Serious: No
  Sender: FDA-Public Use
  Company Number: US-GW PHARMA-202201USGW00288

PATIENT

DRUGS (3)
  1. EPIDIOLEX [Suspect]
     Active Substance: CANNABIDIOL
     Indication: Epilepsy
     Dosage: 80 MILLIGRAM, BID
     Route: 048
     Dates: start: 202111, end: 2021
  2. EPIDIOLEX [Suspect]
     Active Substance: CANNABIDIOL
     Dosage: 90 MILLIGRAM, BID
     Route: 048
     Dates: start: 2021, end: 2021
  3. EPIDIOLEX [Suspect]
     Active Substance: CANNABIDIOL
     Dosage: 100 MILLIGRAM, BID
     Route: 048
     Dates: start: 2021

REACTIONS (1)
  - Weight abnormal [Unknown]
